FAERS Safety Report 4870388-6 (Version None)
Quarter: 2006Q1

REPORT INFORMATION
  Report Type: 
  Country: None (occurrence: None)
  Receive Date: 20060103
  Receipt Date: 20051222
  Transmission Date: 20060701
  Serious: Yes (Other)
  Sender: FDA-Public Use
  Company Number: US-JNJFOC-20051205685

PATIENT
  Sex: Female
  Weight: 69.85 kg

DRUGS (15)
  1. INFLIXIMAB [Suspect]
     Indication: RHEUMATOID ARTHRITIS
     Route: 042
  2. CYCLOBENZAPRINE HCL [Concomitant]
  3. ESTRADIOL INJ [Concomitant]
  4. FOLIC ACID [Concomitant]
  5. PHENYTOIN [Concomitant]
     Route: 048
  6. PROPRANOLOL [Concomitant]
  7. SALSALATE [Concomitant]
  8. SYNTHROID [Concomitant]
  9. TYLENOL [Concomitant]
  10. METHOTREXATE [Concomitant]
  11. ZETIA [Concomitant]
  12. RESTASIS [Concomitant]
  13. CALCIUM WITH VITAMIN D [Concomitant]
     Route: 048
  14. CALCIUM WITH VITAMIN D [Concomitant]
     Route: 048
  15. CALCIUM WITH VITAMIN D [Concomitant]
     Route: 048

REACTIONS (1)
  - SKIN CANCER [None]
